FAERS Safety Report 8311732-7 (Version None)
Quarter: 2012Q2

REPORT INFORMATION
  Report Type: 
  Country: None (occurrence: None)
  Receive Date: 20120425
  Receipt Date: 20120420
  Transmission Date: 20120825
  Serious: Yes (Other)
  Sender: FDA-Public Use
  Company Number: JP-B.I. PHARMACEUTICALS,INC./RIDGEFIELD-2012-BP-02370NB

PATIENT
  Sex: Male
  Weight: 60 kg

DRUGS (7)
  1. PRADAXA [Suspect]
     Indication: ATRIAL FIBRILLATION
     Dosage: 300 MG
     Route: 048
     Dates: start: 20110629
  2. CRESTOR [Concomitant]
     Indication: HYPERLIPIDAEMIA
     Dosage: 2.5 MG
     Route: 048
  3. RIBOFLAVIN TAB [Concomitant]
     Indication: HYPERLIPIDAEMIA
     Dosage: 20 MG
     Route: 048
  4. ASPIRIN [Suspect]
     Indication: EMBOLISM
     Dosage: 100 MG
     Route: 048
     Dates: start: 20100108
  5. CARVEDILOL [Concomitant]
     Indication: CARDIAC DISORDER
     Dosage: 10 MG
     Route: 048
     Dates: start: 20100106
  6. NICORANTA [Concomitant]
     Indication: VASODILATATION
     Dosage: 5 MG
     Route: 048
     Dates: start: 20100106
  7. LANSOPRAZOLE [Concomitant]
     Indication: ULCER
     Dosage: 15 MG
     Route: 048
     Dates: start: 20100106

REACTIONS (4)
  - GASTRIC ULCER [None]
  - SENSATION OF FOREIGN BODY [None]
  - OESOPHAGEAL ULCER HAEMORRHAGE [None]
  - GASTRIC HAEMORRHAGE [None]
